FAERS Safety Report 7953087-3 (Version None)
Quarter: 2011Q4

REPORT INFORMATION
  Report Type: 
  Country: None (occurrence: None)
  Receive Date: 20111201
  Receipt Date: 20111120
  Transmission Date: 20120403
  Serious: Yes (Hospitalization, Other)
  Sender: FDA-Public Use
  Company Number: US-BAXTER-2011BH036841

PATIENT
  Age: 11 Year
  Sex: Female
  Weight: 30 kg

DRUGS (3)
  1. GAMMAGARD LIQUID [Suspect]
     Route: 058
     Dates: start: 20111111, end: 20111111
  2. GAMMAGARD LIQUID [Suspect]
     Indication: IMMUNODEFICIENCY COMMON VARIABLE
     Route: 058
     Dates: start: 20111118, end: 20111118
  3. MOTRIN [Concomitant]
     Indication: PREMEDICATION
     Route: 048
     Dates: start: 20111118, end: 20111118

REACTIONS (8)
  - LOSS OF CONSCIOUSNESS [None]
  - SOMNOLENCE [None]
  - ABDOMINAL PAIN UPPER [None]
  - RASH [None]
  - URTICARIA [None]
  - FALL [None]
  - HEADACHE [None]
  - PAIN [None]
